FAERS Safety Report 25916681 (Version 1)
Quarter: 2025Q4

REPORT INFORMATION
  Report Type: Spontaneous
  Country: CN (occurrence: CN)
  Receive Date: 20251014
  Receipt Date: 20251014
  Transmission Date: 20260118
  Serious: Yes (Hospitalization)
  Sender: CHEPLAPHARM
  Company Number: None

PATIENT
  Age: 78 Year
  Sex: Male

DRUGS (29)
  1. OLANZAPINE [Interacting]
     Active Substance: OLANZAPINE
     Indication: Mood altered
     Dosage: AT NIGHT?DAILY DOSE: 2.5 MILLIGRAM
     Dates: start: 20240704, end: 20240905
  2. FLUVOXAMINE [Interacting]
     Active Substance: FLUVOXAMINE
     Indication: Psychotic disorder
     Dosage: AT NIGHT?DAILY DOSE: 25 MILLIGRAM
     Route: 048
     Dates: start: 20240128, end: 20240301
  3. FLUVOXAMINE [Interacting]
     Active Substance: FLUVOXAMINE
     Indication: Emotional disorder
     Dosage: AT NIGHT?DAILY DOSE: 25 MILLIGRAM
     Route: 048
     Dates: start: 20240128, end: 20240301
  4. FLUVOXAMINE [Interacting]
     Active Substance: FLUVOXAMINE
     Indication: Psychotic disorder
     Dosage: AT NIGHT, DOSE INCREASED?DAILY DOSE: 50 MILLIGRAM
     Route: 048
     Dates: start: 20240301, end: 20240905
  5. FLUVOXAMINE [Interacting]
     Active Substance: FLUVOXAMINE
     Indication: Emotional disorder
     Dosage: AT NIGHT, DOSE INCREASED?DAILY DOSE: 50 MILLIGRAM
     Route: 048
     Dates: start: 20240301, end: 20240905
  6. FLUVOXAMINE [Interacting]
     Active Substance: FLUVOXAMINE
     Indication: Psychotic disorder
  7. FLUVOXAMINE [Interacting]
     Active Substance: FLUVOXAMINE
     Indication: Emotional disorder
  8. MONTELUKAST SODIUM [Concomitant]
     Active Substance: MONTELUKAST SODIUM
     Indication: Asthma
     Dosage: AT BEDTIME?DAILY DOSE: 10 MILLIGRAM
  9. MONTELUKAST SODIUM [Concomitant]
     Active Substance: MONTELUKAST SODIUM
     Indication: Hypersensitivity
     Dosage: AT BEDTIME?DAILY DOSE: 10 MILLIGRAM
  10. LORATADINE [Concomitant]
     Active Substance: LORATADINE
     Indication: Chronic obstructive pulmonary disease
     Dosage: AT BEDTIME?DAILY DOSE: 10 MILLIGRAM
  11. Thophyllline [Concomitant]
     Indication: Chronic obstructive pulmonary disease
     Dosage: (08:00, 16:00);SUSTAINED RELEASE?DAILY DOSE: 200 MILLIGRAM
  12. METHYLPREDNISOLONE [Concomitant]
     Active Substance: METHYLPREDNISOLONE
     Indication: Immunosuppressant drug therapy
     Dosage: DAILY DOSE: 4 MILLIGRAM
  13. METHYLPREDNISOLONE [Concomitant]
     Active Substance: METHYLPREDNISOLONE
     Indication: Antiinflammatory therapy
     Dosage: DAILY DOSE: 4 MILLIGRAM
  14. AMBROXOL [Concomitant]
     Active Substance: AMBROXOL
     Indication: Mucolytic treatment
     Dosage: (08:00, 16:00)?DAILY DOSE: 30 MILLIGRAM
  15. PANTOPRAZOLE SODIUM [Concomitant]
     Active Substance: PANTOPRAZOLE SODIUM
     Indication: Gastrooesophageal reflux disease
     Dosage: BEFORE MEALS?DAILY DOSE: 40 MILLIGRAM
  16. PANTOPRAZOLE SODIUM [Concomitant]
     Active Substance: PANTOPRAZOLE SODIUM
     Indication: Peptic ulcer
     Dosage: BEFORE MEALS?DAILY DOSE: 40 MILLIGRAM
  17. ATORVASTATIN CALCIUM [Concomitant]
     Active Substance: ATORVASTATIN CALCIUM
     Indication: Arteriosclerosis
     Dosage: AT BEDTIME?DAILY DOSE: 20 MILLIGRAM
  18. ATORVASTATIN CALCIUM [Concomitant]
     Active Substance: ATORVASTATIN CALCIUM
     Indication: Dyslipidaemia
     Dosage: AT BEDTIME?DAILY DOSE: 20 MILLIGRAM
  19. ASPIRIN [Concomitant]
     Active Substance: ASPIRIN
     Indication: Angina pectoris
     Dosage: ENTERIC-COATED?DAILY DOSE: 100 MILLIGRAM
  20. ASPIRIN [Concomitant]
     Active Substance: ASPIRIN
     Indication: Coronary artery disease
     Dosage: ENTERIC-COATED?DAILY DOSE: 100 MILLIGRAM
  21. ASPIRIN [Concomitant]
     Active Substance: ASPIRIN
     Indication: Cerebrovascular disorder
     Dosage: ENTERIC-COATED?DAILY DOSE: 100 MILLIGRAM
  22. ISOSORBIDE MONONITRATE [Concomitant]
     Active Substance: ISOSORBIDE MONONITRATE
     Dosage: (08:00, 16:00)?DAILY DOSE: 40 MILLIGRAM
  23. TRIMETAZIDINE [Concomitant]
     Active Substance: TRIMETAZIDINE
     Dosage: (08:00, 16:00); SUSTAINED RELEASE?DAILY DOSE: 70 MILLIGRAM
  24. BISOPROLOL [Concomitant]
     Active Substance: BISOPROLOL
     Dosage: DAILY DOSE: 2.5 MILLIGRAM
  25. FUROSEMIDE [Concomitant]
     Active Substance: FUROSEMIDE
     Indication: Oedema due to cardiac disease
     Dosage: (08:00, 16:00)?DAILY DOSE: 40 MILLIGRAM
  26. FUROSEMIDE [Concomitant]
     Active Substance: FUROSEMIDE
     Indication: Fluid retention
     Dosage: (08:00, 16:00)?DAILY DOSE: 40 MILLIGRAM
  27. SPIRONOLACTONE [Concomitant]
     Active Substance: SPIRONOLACTONE
     Dosage: DAILY DOSE: 20 MILLIGRAM
  28. METHYLCOBALAMIN [Concomitant]
     Active Substance: METHYLCOBALAMIN
     Indication: Neuropathy peripheral
     Dosage: DAILY DOSE: 1.5 MILLIGRAM
  29. METHYLCOBALAMIN [Concomitant]
     Active Substance: METHYLCOBALAMIN
     Indication: Vitamin B12 deficiency
     Dosage: DAILY DOSE: 1.5 MILLIGRAM

REACTIONS (2)
  - Sideroblastic anaemia [Recovered/Resolved]
  - Drug interaction [Recovered/Resolved]

NARRATIVE: CASE EVENT DATE: 20240101
